FAERS Safety Report 5209382-4 (Version None)
Quarter: 2006Q4

REPORT INFORMATION
  Report Type: 
  Country: None (occurrence: None)
  Receive Date: 20061101
  Receipt Date: 20060809
  Transmission Date: 20070319
  Serious: No
  Sender: FDA-Public Use
  Company Number: 2006PV019158

PATIENT
  Age: 42 Year
  Sex: Male
  Weight: 118.3888 kg

DRUGS (1)
  1. SYMLIN [Suspect]
     Indication: DIABETES MELLITUS NON-INSULIN-DEPENDENT
     Dosage: 120 MCG; SC
     Route: 058
     Dates: start: 20060101

REACTIONS (1)
  - WEIGHT INCREASED [None]
